FAERS Safety Report 8522323-7 (Version None)
Quarter: 2012Q3

REPORT INFORMATION
  Report Type: 
  Country: None (occurrence: None)
  Receive Date: 20120719
  Receipt Date: 20120705
  Transmission Date: 20120928
  Serious: Yes (Hospitalization)
  Sender: FDA-Public Use
  Company Number: IT-WATSON-2012-11989

PATIENT
  Sex: Female

DRUGS (10)
  1. RAMIPRIL [Suspect]
     Indication: HYPERTENSION
     Dosage: 20 MG, DAILY
     Route: 048
     Dates: start: 20120417, end: 20120501
  2. ASPIRIN [Concomitant]
     Indication: CARDIOVASCULAR EVENT PROPHYLAXIS
     Dosage: 100MG GASTO-RESISTANT TABLETS^ 30 TABLETS
     Route: 048
  3. METFORMIN HYDROCHLORIDE [Concomitant]
     Indication: DIABETES MELLITUS
     Dosage: ^50MG/850MG FILM-COATED TABLET- ORAL USE^ BLISTER (PA/AL/PVC/AL) 60 TABLETS
     Route: 048
  4. FUROSEMIDE [Concomitant]
     Indication: HYPERTENSION
     Route: 065
  5. CLONIDINA [Concomitant]
     Indication: HYPERTENSION
     Route: 065
  6. AMLODIPINA BESILAT [Concomitant]
     Indication: HYPERTENSION
     Route: 065
  7. NITROGLICERINA [Concomitant]
     Indication: ANGINA PECTORIS
     Route: 065
  8. SPIRIVA [Concomitant]
     Indication: CHRONIC OBSTRUCTIVE PULMONARY DISEASE
     Dosage: 30 CAPSULES IN BLISTER AL/PVC/AL 18MCG WITH HANDIHALER DEVICE
     Route: 055
  9. PANTOPRAZOLO SODICO [Concomitant]
     Indication: PROPHYLAXIS AGAINST GASTROINTESTINAL ULCER
     Route: 065
  10. REPAGLINIDE [Concomitant]
     Indication: DIABETES MELLITUS
     Route: 065

REACTIONS (2)
  - TONGUE OEDEMA [None]
  - RENAL FAILURE ACUTE [None]
